FAERS Safety Report 16580153 (Version 1)
Quarter: 2019Q3

REPORT INFORMATION
  Report Type: Spontaneous
  Country: US (occurrence: US)
  Receive Date: 20190716
  Receipt Date: 20190716
  Transmission Date: 20191004
  Serious: No
  Sender: FDA-Public Use
  Company Number: US-TEVA-2019-US-1076921

PATIENT
  Sex: Female

DRUGS (1)
  1. MICONAZOLE NITRATE. [Suspect]
     Active Substance: MICONAZOLE NITRATE
     Indication: VULVOVAGINAL PRURITUS
     Dosage: FORM STRENGTH : UNKNOWN
     Dates: start: 20190704

REACTIONS (3)
  - Drug ineffective [Unknown]
  - Cystitis [Unknown]
  - Product use in unapproved indication [Unknown]
